FAERS Safety Report 14935378 (Version 2)
Quarter: 2018Q3

REPORT INFORMATION
  Report Type: Spontaneous
  Country: US (occurrence: US)
  Receive Date: 20180524
  Receipt Date: 20180814
  Transmission Date: 20181010
  Serious: Yes (Hospitalization, Other)
  Sender: FDA-Public Use
  Company Number: US-009507513-1805USA008791

PATIENT
  Age: 69 Year
  Sex: Male

DRUGS (1)
  1. KEYTRUDA [Suspect]
     Active Substance: PEMBROLIZUMAB
     Indication: NON-SMALL CELL LUNG CANCER
     Route: 041

REACTIONS (4)
  - Myasthenia gravis [Unknown]
  - Immune-mediated adverse reaction [Unknown]
  - Cardiomyopathy acute [Unknown]
  - Respiratory failure [Unknown]
